FAERS Safety Report 6384783-X (Version None)
Quarter: 2009Q4

REPORT INFORMATION
  Report Type: 
  Country: None (occurrence: None)
  Receive Date: 20091001
  Receipt Date: 20090924
  Transmission Date: 20100525
  Serious: Yes (Hospitalization)
  Sender: FDA-Public Use
  Company Number: JP-ABBOTT-09P-087-0574819-00

PATIENT
  Sex: Female
  Weight: 36.5 kg

DRUGS (5)
  1. HUMIRA [Suspect]
     Indication: RHEUMATOID ARTHRITIS
     Route: 058
     Dates: start: 20090107, end: 20090428
  2. PREDNISOLONE [Concomitant]
     Indication: RHEUMATOID ARTHRITIS
     Route: 048
     Dates: end: 20090514
  3. ETODOLAC [Concomitant]
     Indication: RHEUMATOID ARTHRITIS
     Route: 048
     Dates: end: 20090514
  4. SODIIUM RABEPRAZOLE [Concomitant]
     Indication: REFLUX OESOPHAGITIS
     Route: 048
     Dates: end: 20090514
  5. SODIUM RISEDRONATE HYDRATE [Concomitant]
     Indication: OSTEOPOROSIS
     Route: 048
     Dates: end: 20090514

REACTIONS (2)
  - INTERSTITIAL LUNG DISEASE [None]
  - PNEUMOCYSTIS JIROVECI PNEUMONIA [None]
